FAERS Safety Report 20845118 (Version 1)
Quarter: 2022Q2

REPORT INFORMATION
  Report Type: Spontaneous
  Country: US (occurrence: US)
  Receive Date: 20220518
  Receipt Date: 20220518
  Transmission Date: 20220721
  Serious: No
  Sender: FDA-Public Use
  Company Number: US-HORIZON THERAPEUTICS-HZN-2022-003198

PATIENT
  Sex: Female

DRUGS (3)
  1. BUPHENYL [Suspect]
     Active Substance: SODIUM PHENYLBUTYRATE
     Indication: Urea cycle disorder
     Dosage: UNK
     Route: 048
  2. BUPHENYL [Suspect]
     Active Substance: SODIUM PHENYLBUTYRATE
     Indication: Ornithine transcarbamoylase deficiency
  3. ARGININE [Concomitant]
     Active Substance: ARGININE

REACTIONS (2)
  - Dysphagia [Recovered/Resolved]
  - Product taste abnormal [Recovered/Resolved]
